FAERS Safety Report 8531265-2 (Version None)
Quarter: 2012Q3

REPORT INFORMATION
  Report Type: 
  Country: None (occurrence: None)
  Receive Date: 20120710
  Receipt Date: 20120626
  Transmission Date: 20120928
  Serious: Yes (Death, Hospitalization)
  Sender: FDA-Public Use
  Company Number: UTC-019396

PATIENT
  Age: 76 Year
  Sex: Female
  Weight: 59.55 kg

DRUGS (4)
  1. TYVASO [Suspect]
  2. COUMADIN [Concomitant]
  3. TYVASO [Suspect]
     Indication: PULMONARY ARTERIAL HYPERTENSION
     Dosage: 18 TO 54 MCGS (4 IN 1 D), INHALATION
     Route: 055
     Dates: start: 20120317
  4. TYVASO [Suspect]

REACTIONS (4)
  - RIGHT VENTRICULAR FAILURE [None]
  - DYSPNOEA [None]
  - RENAL FAILURE ACUTE [None]
  - MYOCARDIAL INFARCTION [None]
